FAERS Safety Report 18009294 (Version 1)
Quarter: 2020Q3

REPORT INFORMATION
  Report Type: Spontaneous
  Country: CN (occurrence: CN)
  Receive Date: 20200710
  Receipt Date: 20200710
  Transmission Date: 20201103
  Serious: Yes (Hospitalization)
  Sender: FDA-Public Use
  Company Number: CN-BAXTER-2020BAX013906

PATIENT
  Age: 52 Year
  Sex: Female
  Weight: 53 kg

DRUGS (18)
  1. ENDOXAN [Suspect]
     Active Substance: CYCLOPHOSPHAMIDE
     Dosage: FIFTH CYCLE, CYCLOPHOSPHAMIDE + 0.9 % SODIUM CHLORIDE 250 ML.
     Route: 041
     Dates: start: 20200531, end: 20200531
  2. SODIUM CHLORIDE. [Suspect]
     Active Substance: SODIUM CHLORIDE
     Dosage: SIXTH CYCLE OF CHEMOTHERAPY (DOSE RE?INTRODUCED), EPIRUBICIN HYDROCHLORIDE + 0.9% SODIUM CHLORIDE
     Route: 041
     Dates: start: 202006
  3. ENDOXAN [Suspect]
     Active Substance: CYCLOPHOSPHAMIDE
     Indication: BREAST CANCER
     Dosage: FIRST TO FOURTH CYCLE, CYCLOPHOSPHAMIDE + 0.9 % SODIUM CHLORIDE
     Route: 041
  4. PHARMORUBICIN [Suspect]
     Active Substance: EPIRUBICIN
     Dosage: FIFTH CYCLE, EPIRUBICIN HYDROCHLORIDE + 0.9 % SODIUM CHLORIDE 250ML
     Route: 041
     Dates: start: 20200601, end: 20200601
  5. PHARMORUBICIN [Suspect]
     Active Substance: EPIRUBICIN
     Dosage: SIXTH CYCLE OF CHEMOTHERAPY (DOSE RE?INTRODUCED) EPIRUBICIN HYDROCHLORIDE + 0.9 % SODIUM CHLORIDE
     Route: 041
     Dates: start: 202006
  6. SODIUM CHLORIDE. [Suspect]
     Active Substance: SODIUM CHLORIDE
     Dosage: FIFTH CYCLE, EPIRUBICIN HYDROCHLORIDE 110 MG + 0.9% SODIUM CHLORIDE
     Route: 041
     Dates: start: 20200601, end: 20200601
  7. SODIUM CHLORIDE. [Suspect]
     Active Substance: SODIUM CHLORIDE
     Dosage: SIXTH CYCLE OF CHEMOTHERAPY (DOSE RE?INTRODUCED), CYCLOPHOSPHAMIDE + 0.9% SODIUM CHLORIDE
     Route: 041
     Dates: start: 202006
  8. DOCETAXEL. [Suspect]
     Active Substance: DOCETAXEL
     Dosage: SIXTH CYCLE OF CHEMOTHERAPY (DOSE RE?INTRODUCED), DOCETAXEL + 0.9% SODIUM CHLORIDE
     Route: 041
     Dates: start: 202006
  9. PHARMORUBICIN [Suspect]
     Active Substance: EPIRUBICIN
     Indication: BREAST CANCER
     Dosage: FIRST TO FOURTH CYCLE, EPIRUBICIN HYDROCHLORIDE + 0.9 % SODIUM CHLORIDE
     Route: 041
  10. DOCETAXEL. [Suspect]
     Active Substance: DOCETAXEL
     Indication: BREAST CANCER
     Dosage: FIRST TO FOURTH CYCLES, DOCETAXEL + 0.9% SODIUM CHLORIDE
     Route: 041
  11. DOCETAXEL. [Suspect]
     Active Substance: DOCETAXEL
     Dosage: FIFTH CYCLE, DOCETAXEL + 0.9% SODIUM CHLORIDE 250ML
     Route: 041
     Dates: start: 20200531, end: 20200531
  12. SODIUM CHLORIDE. [Suspect]
     Active Substance: SODIUM CHLORIDE
     Dosage: FIRST TO FOURTH CYCLE, EPIRUBICIN HYDROCHLORIDE + 0.9% SODIUM CHLORIDE
     Route: 041
  13. SODIUM CHLORIDE. [Suspect]
     Active Substance: SODIUM CHLORIDE
     Dosage: FIRST TO FOURTH CYCLES, DOCETAXEL + 0.9% SODIUM CHLORIDE
     Route: 041
  14. SODIUM CHLORIDE. [Suspect]
     Active Substance: SODIUM CHLORIDE
     Indication: MEDICATION DILUTION
     Dosage: FIRST TO FOURTH CYCLES, CYCLOPHOSPHAMIDE + 0.9% SODIUM CHLORIDE
     Route: 041
  15. ENDOXAN [Suspect]
     Active Substance: CYCLOPHOSPHAMIDE
     Dosage: SIXTH CYCLE OF CHEMOTHERAPY (DOSE RE?INTRODUCED), CYCLOPHOSPHAMIDE + 0.9 % SODIUM CHLORIDE
     Route: 041
     Dates: start: 202006
  16. SODIUM CHLORIDE. [Suspect]
     Active Substance: SODIUM CHLORIDE
     Dosage: FIFTH CYCLE, CYCLOPHOSPHAMIDE 0.88 G + 0.9% SODIUM CHLORIDE
     Route: 041
     Dates: start: 20200531, end: 20200531
  17. SODIUM CHLORIDE. [Suspect]
     Active Substance: SODIUM CHLORIDE
     Dosage: FIFTH CYCLE, DOCETAXEL 110 MG + 0.9% SODIUM CHLORIDE
     Route: 041
     Dates: start: 20200531, end: 20200531
  18. SODIUM CHLORIDE. [Suspect]
     Active Substance: SODIUM CHLORIDE
     Dosage: SIXTH CYCLE OF CHEMOTHERAPY (DOSE RE?INTRODUCED), DOCETAXEL + 0.9% SODIUM CHLORIDE
     Route: 041
     Dates: start: 202006

REACTIONS (4)
  - Gastrointestinal disorder [Recovering/Resolving]
  - Oedema peripheral [Recovering/Resolving]
  - Face oedema [Recovering/Resolving]
  - Oedema [Recovering/Resolving]

NARRATIVE: CASE EVENT DATE: 20200621
